FAERS Safety Report 9407380 (Version 1)
Quarter: 2013Q3

REPORT INFORMATION
  Report Type: Spontaneous
  Country: JP (occurrence: JP)
  Receive Date: 20130718
  Receipt Date: 20130718
  Transmission Date: 20140515
  Serious: Yes (Death)
  Sender: FDA-Public Use
  Company Number: JP-OTSUKA-JP-2013-12554

PATIENT
  Sex: 0

DRUGS (3)
  1. SAMSCA [Suspect]
     Indication: OEDEMA
     Dosage: UNK
     Route: 051
  2. SAMSCA [Suspect]
     Indication: OFF LABEL USE
  3. LASIX [Concomitant]
     Indication: OEDEMA
     Dosage: 100 MG MILLIGRAM(S), DAILY DOSE
     Route: 065

REACTIONS (2)
  - Death [Fatal]
  - Off label use [Unknown]
